FAERS Safety Report 18059343 (Version 1)
Quarter: 2020Q3

REPORT INFORMATION
  Report Type: Spontaneous
  Country: US (occurrence: US)
  Receive Date: 20200723
  Receipt Date: 20200723
  Transmission Date: 20201103
  Serious: No
  Sender: FDA-Public Use
  Company Number: US-ICU MEDICAL, INC.-ICU2019US00179

PATIENT

DRUGS (2)
  1. 10% DEXTROSE INJECTION [Suspect]
     Active Substance: DEXTROSE
     Dosage: 20.8 MILLILITER/HR
     Route: 042
     Dates: start: 20191109
  2. 10% DEXTROSE INJECTION [Suspect]
     Active Substance: DEXTROSE
     Indication: PRODUCT USED FOR UNKNOWN INDICATION
     Dosage: 7.0 MILLILITER/HR
     Route: 042
     Dates: start: 20191109

REACTIONS (2)
  - Incorrect drug administration rate [Unknown]
  - Blood glucose increased [Unknown]

NARRATIVE: CASE EVENT DATE: 20191109
